FAERS Safety Report 9026380 (Version 2)
Quarter: 2013Q1

REPORT INFORMATION
  Report Type: Spontaneous
  Country: IT (occurrence: None)
  Receive Date: 20121211
  Receipt Date: 20121217
  Transmission Date: 20140127
  Serious: No
  Sender: FDA-Public Use
  Company Number: DSA_61315_2012

PATIENT
  Age: 66 Year
  Sex: Female

DRUGS (8)
  1. 5-FU [Suspect]
     Indication: COLORECTAL CANCER
     Dosage: EVERY OTHER WEEK INTRAVENOUS BOLUS), (2400 MG/M2; EVERY WEEK INTRAVENOUS (NOT OTHERWISE SPEICIFIED),
     Route: 040
     Dates: start: 20121016, end: 20121016
  2. AFLIBERCEPT [Suspect]
     Indication: COLORECTAL CANCER
     Route: 042
     Dates: start: 20121016, end: 20121016
  3. IRINOTECAN (IRINOTECAN) [Suspect]
     Indication: COLORECTAL CANCER
     Route: 042
     Dates: start: 20121016, end: 20121016
  4. LEUCOVORIN (LEUCOVORIN-FOLINIC ACID) [Suspect]
     Indication: COLORECTAL CANCER
     Route: 042
     Dates: start: 20121016, end: 20121016
  5. SEROTONIN ANTAGONISTS [Concomitant]
  6. ANTIEMETICS AND ANTINAUSEANTS [Concomitant]
  7. CORTICOSTEROIDS [Concomitant]
  8. ATROPINE [Concomitant]

REACTIONS (1)
  - Venous thrombosis [None]
